FAERS Safety Report 7124836-1 (Version None)
Quarter: 2010Q4

REPORT INFORMATION
  Report Type: 
  Country: None (occurrence: None)
  Receive Date: 20101123
  Receipt Date: 20101123
  Transmission Date: 20110411
  Serious: Yes (Life-Threatening)
  Sender: FDA-Public Use
  Company Number: None

PATIENT
  Age: 95 Year
  Sex: Female
  Weight: 84.369 kg

DRUGS (10)
  1. TELMISARTAN [Suspect]
     Indication: HYPERTENSION
     Dosage: 40 MG DAILY PO
     Route: 048
  2. ASPIRIN [Concomitant]
  3. CARBIDOPA + LEVODOPA [Concomitant]
  4. DOCUSATE [Concomitant]
  5. FERROUS SULFATE [Concomitant]
  6. GABAPENTIN [Concomitant]
  7. SIMVASTATIN [Concomitant]
  8. ESOMEPRAZOLE [Concomitant]
  9. NOVOLOG SLIDING SCALE [Concomitant]
  10. HYDRALAZINE [Concomitant]

REACTIONS (6)
  - ATRIAL FIBRILLATION [None]
  - BRADYARRHYTHMIA [None]
  - DYSARTHRIA [None]
  - ELECTROCARDIOGRAM QRS COMPLEX ABNORMAL [None]
  - HYPERKALAEMIA [None]
  - SYNCOPE [None]
